FAERS Safety Report 15389970 (Version 1)
Quarter: 2018Q3

REPORT INFORMATION
  Report Type: Report from Study
  Country: CN (occurrence: CN)
  Receive Date: 20180917
  Receipt Date: 20180917
  Transmission Date: 20181010
  Serious: Yes (Other)
  Sender: FDA-Public Use
  Company Number: CN-ROCHE-2184644

PATIENT

DRUGS (1)
  1. RITUXIMAB. [Suspect]
     Active Substance: RITUXIMAB
     Indication: NEPHROTIC SYNDROME
     Route: 042

REACTIONS (5)
  - Infection [Recovering/Resolving]
  - Off label use [Unknown]
  - Hypovolaemic shock [Recovering/Resolving]
  - Intentional product use issue [Unknown]
  - Acute kidney injury [Recovering/Resolving]
